FAERS Safety Report 20752148 (Version 7)
Quarter: 2022Q3

REPORT INFORMATION
  Report Type: Report from Study
  Country: CA (occurrence: None)
  Receive Date: 20220426
  Receipt Date: 20220908
  Transmission Date: 20221027
  Serious: Yes (Hospitalization)
  Sender: FDA-Public Use
  Company Number: CA-ROCHE-3083648

PATIENT
  Age: 78 Year
  Sex: Male
  Weight: 68.5 kg

DRUGS (8)
  1. ATEZOLIZUMAB [Suspect]
     Active Substance: ATEZOLIZUMAB
     Indication: Hormone-refractory prostate cancer
     Dosage: ON THE SAME DAY, FIRST DOSE AND MOST RECENT DOSE OF ATEZOLIZUMAB 1200 MG, Q3WEEKS INTRAVENOUS, PRIOR
     Route: 041
     Dates: start: 20220302, end: 20220419
  2. CABOZANTINIB [Suspect]
     Active Substance: CABOZANTINIB
     Indication: Hormone-refractory prostate cancer
     Dosage: ON 16/MAR/2022, THE PATIENT RECEIVED THE MOST RECENT DOSE OF CABOZANTINIB PRIOR TO THE EVENT.
     Route: 048
     Dates: start: 20220302, end: 20220419
  3. CANDESARTAN [Concomitant]
     Active Substance: CANDESARTAN
     Dates: start: 20201015
  4. GABAPENTIN [Concomitant]
     Active Substance: GABAPENTIN
     Dates: start: 20210108
  5. ACETAMINOPHEN\CODEINE PHOSPHATE [Concomitant]
     Active Substance: ACETAMINOPHEN\CODEINE PHOSPHATE
  6. POLYETHYLENE GLYCOL 3350 [Concomitant]
     Active Substance: POLYETHYLENE GLYCOL 3350
     Dates: start: 20220320
  7. LIDOCAINE HYDROCHLORIDE [Concomitant]
     Active Substance: LIDOCAINE HYDROCHLORIDE
  8. ELIGARD [Concomitant]
     Active Substance: LEUPROLIDE ACETATE
     Dates: start: 20180824

REACTIONS (2)
  - Drug-induced liver injury [Recovered/Resolved]
  - Immune-mediated hepatitis [Recovered/Resolved]

NARRATIVE: CASE EVENT DATE: 20220412
